FAERS Safety Report 6852173-9 (Version None)
Quarter: 2010Q3

REPORT INFORMATION
  Report Type: 
  Country: None (occurrence: None)
  Receive Date: 20100717
  Receipt Date: 20080102
  Transmission Date: 20110219
  Serious: No
  Sender: FDA-Public Use
  Company Number: US-PFIZER INC-2007094790

PATIENT
  Sex: Female
  Weight: 72.6 kg

DRUGS (8)
  1. CHANTIX [Suspect]
     Indication: SMOKING CESSATION THERAPY
     Route: 048
     Dates: start: 20070101
  2. RITALIN [Concomitant]
  3. SEROQUEL [Concomitant]
  4. TOPAMAX [Concomitant]
  5. OMEPRAZOLE [Concomitant]
  6. SIMVASTATIN [Concomitant]
  7. VITAMIN B COMPLEX CAP [Concomitant]
  8. GENERAL NUTRIENTS/HERBAL NOS/MINERALS NOS/VITAMINS NOS [Concomitant]

REACTIONS (1)
  - DRUG SCREEN POSITIVE [None]
